FAERS Safety Report 14085098 (Version 1)
Quarter: 2017Q4

REPORT INFORMATION
  Report Type: Report from Study
  Country: None (occurrence: NL)
  Receive Date: 20171013
  Receipt Date: 20171013
  Transmission Date: 20180321
  Serious: Yes (Other)
  Sender: FDA-Public Use
  Company Number: NL-ABBVIE-17K-114-2126266-00

PATIENT
  Sex: Male

DRUGS (1)
  1. DUODOPA [Suspect]
     Active Substance: CARBIDOPA\LEVODOPA
     Indication: PARKINSON^S DISEASE
     Dosage: MD 9, CD 3.7, ED 1
     Route: 050
     Dates: start: 20150914

REACTIONS (14)
  - Joint stiffness [Not Recovered/Not Resolved]
  - Gait disturbance [Not Recovered/Not Resolved]
  - General physical health deterioration [Not Recovered/Not Resolved]
  - Dry eye [Not Recovered/Not Resolved]
  - Fall [Not Recovered/Not Resolved]
  - Stoma site erythema [Not Recovered/Not Resolved]
  - Choking [Not Recovered/Not Resolved]
  - Cataract [Not Recovered/Not Resolved]
  - Memory impairment [Not Recovered/Not Resolved]
  - Corneal reflex decreased [Unknown]
  - Stoma site hypersensitivity [Not Recovered/Not Resolved]
  - Nervousness [Not Recovered/Not Resolved]
  - Muscle spasms [Not Recovered/Not Resolved]
  - Weight decreased [Not Recovered/Not Resolved]

NARRATIVE: CASE EVENT DATE: 2017
